FAERS Safety Report 11814789 (Version 2)
Quarter: 2015Q4

REPORT INFORMATION
  Report Type: Spontaneous
  Country: FR (occurrence: FR)
  Receive Date: 20151209
  Receipt Date: 20151231
  Transmission Date: 20160305
  Serious: Yes (Other)
  Sender: FDA-Public Use
  Company Number: FR-BRISTOL-MYERS SQUIBB COMPANY-BMS-2015-084858

PATIENT
  Age: 72 Year
  Sex: Male

DRUGS (1)
  1. WARFARIN SODIUM. [Suspect]
     Active Substance: WARFARIN SODIUM
     Indication: HIP ARTHROPLASTY
     Dosage: UNK
     Route: 065

REACTIONS (4)
  - Fistula [Unknown]
  - Muscle haemorrhage [Unknown]
  - Overdose [Unknown]
  - Haematoma infection [Unknown]
